FAERS Safety Report 15895572 (Version 2)
Quarter: 2019Q2

REPORT INFORMATION
  Report Type: Report from Study
  Country: US (occurrence: US)
  Receive Date: 20190131
  Receipt Date: 20190407
  Transmission Date: 20190711
  Serious: Yes (Death)
  Sender: FDA-Public Use
  Company Number: US-HLSUS-2019-US-000090

PATIENT
  Age: 67 Year
  Sex: Male

DRUGS (4)
  1. STALEVO [Concomitant]
     Active Substance: CARBIDOPA\ENTACAPONE\LEVODOPA
     Indication: PARKINSON^S DISEASE
     Dosage: 150 MG
     Dates: end: 20181224
  2. CLOZARIL [Suspect]
     Active Substance: CLOZAPINE
     Indication: HALLUCINATION
     Dosage: 25 MG
     Route: 048
     Dates: start: 20170629, end: 20181224
  3. RYTARY [Concomitant]
     Active Substance: CARBIDOPA\LEVODOPA
     Indication: PARKINSON^S DISEASE
     Dosage: 245 MG
     Route: 048
     Dates: end: 20181224
  4. DONAPEZIL 1 [Concomitant]
     Indication: PARKINSON^S DISEASE
     Dosage: 10 MG
     Route: 048
     Dates: end: 20181224

REACTIONS (7)
  - Parkinson^s disease [Fatal]
  - Confusional state [Fatal]
  - Agitation [Fatal]
  - Refusal of treatment by patient [Fatal]
  - Immobile [Fatal]
  - Hypophagia [Fatal]
  - Depression [Fatal]

NARRATIVE: CASE EVENT DATE: 20181224
